FAERS Safety Report 19423728 (Version 2)
Quarter: 2021Q3

REPORT INFORMATION
  Report Type: Spontaneous
  Country: US (occurrence: US)
  Receive Date: 20210616
  Receipt Date: 20210709
  Transmission Date: 20211014
  Serious: No
  Sender: FDA-Public Use
  Company Number: US-PFIZER INC-2021308681

PATIENT
  Age: 50 Year
  Sex: Female
  Weight: 88 kg

DRUGS (2)
  1. LYRICA [Suspect]
     Active Substance: PREGABALIN
     Indication: NEURALGIA
  2. LYRICA [Suspect]
     Active Substance: PREGABALIN
     Indication: TRIGEMINAL NEURALGIA
     Dosage: 150 MG, 3X/DAY
     Dates: start: 2015

REACTIONS (15)
  - Malaise [Recovered/Resolved]
  - Chest pain [Recovering/Resolving]
  - Headache [Recovered/Resolved]
  - Feeling of despair [Unknown]
  - Feeling abnormal [Unknown]
  - Condition aggravated [Unknown]
  - Illness [Unknown]
  - Drug ineffective [Unknown]
  - Abdominal pain upper [Recovered/Resolved]
  - Withdrawal syndrome [Unknown]
  - Muscle spasms [Unknown]
  - Dyspnoea [Recovering/Resolving]
  - Pain [Not Recovered/Not Resolved]
  - Irritability [Unknown]
  - Blood pressure increased [Unknown]

NARRATIVE: CASE EVENT DATE: 20210306
